FAERS Safety Report 19164586 (Version 1)
Quarter: 2021Q2

REPORT INFORMATION
  Report Type: Spontaneous
  Country: GB (occurrence: GB)
  Receive Date: 20210421
  Receipt Date: 20210421
  Transmission Date: 20210717
  Serious: Yes (Hospitalization, Other)
  Sender: FDA-Public Use
  Company Number: GB-009507513-2104GBR004150

PATIENT
  Age: 74 Year
  Sex: Male

DRUGS (11)
  1. HYDROXOCOBALAMIN [Concomitant]
     Active Substance: HYDROXOCOBALAMIN
     Dosage: 1MG/ML
  2. ALBUTEROL. [Concomitant]
     Active Substance: ALBUTEROL
     Dosage: PUFFS FOUR TIMES DAIL
     Route: 055
  3. GLIMEPIRIDE. [Suspect]
     Active Substance: GLIMEPIRIDE
     Route: 048
  4. METFORMIN [Suspect]
     Active Substance: METFORMIN HYDROCHLORIDE
     Dosage: HELD, RESUME PRIOR TO DISCHARGE
     Route: 048
  5. HYPROMELLOSE [Concomitant]
     Active Substance: HYPROMELLOSES
     Dosage: 10ML
     Route: 050
  6. MOMETASONE FUROATE. [Concomitant]
     Active Substance: MOMETASONE FUROATE
     Dosage: EACH NOSTRIL. 50MCG/DOSE.  THEN REDUCE WHEN SYMPTOMS UNDER CONTROL
     Dates: start: 20200922
  7. FORMOTEROL FUMARATE [Concomitant]
     Active Substance: FORMOTEROL FUMARATE
  8. RAMIPRIL. [Concomitant]
     Active Substance: RAMIPRIL
     Route: 048
  9. EZETIMIBE. [Concomitant]
     Active Substance: EZETIMIBE
     Route: 048
  10. SITAGLIPTIN PHOSPHATE [Suspect]
     Active Substance: SITAGLIPTIN PHOSPHATE
     Route: 048
  11. BECLOMETHASONE DIPROPIONATE [Concomitant]
     Active Substance: BECLOMETHASONE DIPROPIONATE

REACTIONS (3)
  - Hypoglycaemia [Recovered/Resolved]
  - Seizure [Unknown]
  - Pneumonia aspiration [Unknown]
